FAERS Safety Report 9567013 (Version 1)
Quarter: 2013Q3

REPORT INFORMATION
  Report Type: Spontaneous
  Country: US (occurrence: US)
  Receive Date: 20130930
  Receipt Date: 20130930
  Transmission Date: 20140515
  Serious: No
  Sender: FDA-Public Use
  Company Number: US-AMGEN-USASP2012061496

PATIENT
  Age: 56 Year
  Sex: Female
  Weight: 102 kg

DRUGS (14)
  1. ENBREL [Suspect]
     Indication: PRODUCT USED FOR UNKNOWN INDICATION
     Dosage: 50 MG, QWK
     Route: 058
  2. CELEBREX [Concomitant]
     Dosage: 50 MG, UNK
  3. PREDNISONE [Concomitant]
     Dosage: 1 MG, UNK
  4. ATENOLOL [Concomitant]
     Dosage: 50 MG, UNK
  5. FOLIC ACID [Concomitant]
     Dosage: UNK
  6. TRAMADOL HCL [Concomitant]
     Dosage: 50 MG, UNK
  7. ALPRAZOLAM [Concomitant]
     Dosage: 2 MG, UNK
  8. MULTIVITAMIN                       /07504101/ [Concomitant]
     Dosage: UNK
  9. TUMS                               /00193601/ [Concomitant]
     Dosage: 500 MG, UNK
  10. VITAMIN C                          /00008001/ [Concomitant]
     Dosage: UNK
  11. CALCIUM + VITAMIN D                /01483701/ [Concomitant]
     Dosage: 500 UNK, UNK
  12. VITAMIN D                          /00107901/ [Concomitant]
     Dosage: 400 UNK, UNK
  13. OMEGA 3                            /01334101/ [Concomitant]
     Dosage: 340 MG, UNK
  14. PRILOSEC                           /00661201/ [Concomitant]
     Dosage: 10 MG, UNK

REACTIONS (1)
  - Synovectomy [Unknown]
